FAERS Safety Report 18353748 (Version 2)
Quarter: 2020Q4

REPORT INFORMATION
  Report Type: Spontaneous
  Country: US (occurrence: US)
  Receive Date: 20201007
  Receipt Date: 20201028
  Transmission Date: 20210114
  Serious: No
  Sender: FDA-Public Use
  Company Number: US-KYOWAKIRIN-2020BKK015397

PATIENT

DRUGS (13)
  1. NOURIANZ [Suspect]
     Active Substance: ISTRADEFYLLINE
     Dosage: 20 MG DAILY
     Route: 048
     Dates: start: 20200626, end: 20200907
  2. MELATONIN [Concomitant]
     Active Substance: MELATONIN
     Indication: PRODUCT USED FOR UNKNOWN INDICATION
     Dosage: 10 MG
     Route: 065
  3. VITAMIN D3 [Concomitant]
     Active Substance: CHOLECALCIFEROL
     Indication: PRODUCT USED FOR UNKNOWN INDICATION
     Dosage: 50000 IU
     Route: 065
  4. HYDROCODONE/ACETAMINOPHEN [Concomitant]
     Active Substance: ACETAMINOPHEN\HYDROCODONE
     Indication: PRODUCT USED FOR UNKNOWN INDICATION
     Dosage: UNK
     Route: 065
  5. VITAMIN B1 [Concomitant]
     Active Substance: THIAMINE HYDROCHLORIDE
     Indication: PRODUCT USED FOR UNKNOWN INDICATION
     Dosage: 100 MG
     Route: 065
  6. CARBIDOPA/LEVODOPA [Concomitant]
     Active Substance: CARBIDOPA\LEVODOPA
     Indication: PRODUCT USED FOR UNKNOWN INDICATION
     Dosage: 25-100 MG
     Route: 065
  7. FISH OIL [Concomitant]
     Active Substance: FISH OIL
     Indication: PRODUCT USED FOR UNKNOWN INDICATION
     Dosage: 1000 MG
     Route: 065
  8. ALPRAZOLAM. [Concomitant]
     Active Substance: ALPRAZOLAM
     Indication: PRODUCT USED FOR UNKNOWN INDICATION
     Dosage: 1 MG
     Route: 065
  9. LUNESTA [Concomitant]
     Active Substance: ESZOPICLONE
     Indication: PRODUCT USED FOR UNKNOWN INDICATION
     Dosage: 1 MG
     Route: 065
  10. STEGLATRO [Concomitant]
     Active Substance: ERTUGLIFLOZIN PIDOLATE
     Indication: PRODUCT USED FOR UNKNOWN INDICATION
     Dosage: 15 MG
     Route: 065
  11. NOURIANZ [Suspect]
     Active Substance: ISTRADEFYLLINE
     Indication: PARKINSON^S DISEASE
     Dosage: 20 MG, BID
     Route: 048
     Dates: start: 20200908, end: 202009
  12. NOURIANZ [Suspect]
     Active Substance: ISTRADEFYLLINE
     Dosage: 20 MG, ONCE DAILY
     Route: 048
     Dates: start: 202009, end: 20201016
  13. ZOFRAN [Concomitant]
     Active Substance: ONDANSETRON HYDROCHLORIDE
     Indication: PRODUCT USED FOR UNKNOWN INDICATION
     Dosage: 4 MG
     Route: 065

REACTIONS (4)
  - Binge eating [Not Recovered/Not Resolved]
  - Tremor [Recovered/Resolved]
  - Chest discomfort [Not Recovered/Not Resolved]
  - Dyskinesia [Recovered/Resolved]

NARRATIVE: CASE EVENT DATE: 20200908
